FAERS Safety Report 6128178-2 (Version None)
Quarter: 2009Q1

REPORT INFORMATION
  Report Type: 
  Country: None (occurrence: None)
  Receive Date: 20090320
  Receipt Date: 20090320
  Transmission Date: 20090719
  Serious: Yes (Other)
  Sender: FDA-Public Use
  Company Number: None

PATIENT
  Sex: Male
  Weight: 98.4306 kg

DRUGS (2)
  1. SENSORCAINE [Suspect]
     Indication: SPINAL ANAESTHESIA
     Dosage: 1.5 ML X1 DOSE EPIDURAL, BETWEEN 0930-1000
     Route: 008
     Dates: start: 20090304
  2. DURAMORPH PF [Concomitant]

REACTIONS (1)
  - DRUG INEFFECTIVE [None]
